FAERS Safety Report 13877389 (Version 2)
Quarter: 2017Q3

REPORT INFORMATION
  Report Type: Spontaneous
  Country: US (occurrence: US)
  Receive Date: 20170817
  Receipt Date: 20170908
  Transmission Date: 20171127
  Serious: Yes (Other)
  Sender: FDA-Public Use
  Company Number: US-NOVOPROD-558358

PATIENT
  Age: 84 Year
  Sex: Female

DRUGS (3)
  1. LEVEMIR [Suspect]
     Active Substance: INSULIN DETEMIR
     Dosage: 20 U, QD
     Route: 058
     Dates: start: 201707, end: 201707
  2. LEVEMIR [Suspect]
     Active Substance: INSULIN DETEMIR
     Indication: TYPE 2 DIABETES MELLITUS
     Dosage: 45 U, QD (30 U IN AM, 15 U IN AFTERNOON)
     Route: 058
     Dates: end: 201707
  3. LEVEMIR [Suspect]
     Active Substance: INSULIN DETEMIR
     Dosage: 35 U, QD
     Route: 058
     Dates: start: 201707

REACTIONS (1)
  - Loss of consciousness [Recovered/Resolved]

NARRATIVE: CASE EVENT DATE: 201707
